FAERS Safety Report 15477193 (Version 2)
Quarter: 2018Q4

REPORT INFORMATION
  Report Type: Spontaneous
  Country: US (occurrence: US)
  Receive Date: 20181009
  Receipt Date: 20181016
  Transmission Date: 20190205
  Serious: Yes (Other)
  Sender: FDA-Public Use
  Company Number: US-PFIZER INC-2018402112

PATIENT
  Age: 34 Year
  Sex: Female
  Weight: 90.72 kg

DRUGS (3)
  1. ZOLOFT [Suspect]
     Active Substance: SERTRALINE HYDROCHLORIDE
     Indication: HAEMORRHAGE
     Dosage: 150 MG, 1X/DAY
     Dates: end: 201804
  2. SERTRALINE HCL [Suspect]
     Active Substance: SERTRALINE HYDROCHLORIDE
     Indication: HORMONE LEVEL ABNORMAL
     Dosage: 150 MG, 1X/DAY
     Dates: start: 2011, end: 201804
  3. ZOLOFT [Suspect]
     Active Substance: SERTRALINE HYDROCHLORIDE
     Indication: HORMONE LEVEL ABNORMAL
     Dosage: 200 MG, UNK (200MG FOR 7 YEARS)
     Dates: start: 2011

REACTIONS (21)
  - Agitation [Not Recovered/Not Resolved]
  - Tinnitus [Not Recovered/Not Resolved]
  - Blood glucose increased [Unknown]
  - Aggression [Not Recovered/Not Resolved]
  - Muscle twitching [Unknown]
  - Product use in unapproved indication [Unknown]
  - Bipolar disorder [Unknown]
  - Hepatic steatosis [Unknown]
  - Mood altered [Unknown]
  - Disturbance in attention [Not Recovered/Not Resolved]
  - Anxiety [Not Recovered/Not Resolved]
  - Mood swings [Unknown]
  - Anger [Not Recovered/Not Resolved]
  - Memory impairment [Unknown]
  - Balance disorder [Not Recovered/Not Resolved]
  - Weight increased [Not Recovered/Not Resolved]
  - Menstruation irregular [Unknown]
  - Overdose [Unknown]
  - Feeling abnormal [Not Recovered/Not Resolved]
  - Visual impairment [Not Recovered/Not Resolved]
  - Fine motor skill dysfunction [Not Recovered/Not Resolved]

NARRATIVE: CASE EVENT DATE: 2011
